FAERS Safety Report 13705065 (Version 1)
Quarter: 2017Q2

REPORT INFORMATION
  Report Type: Spontaneous
  Country: US (occurrence: US)
  Receive Date: 20170629
  Receipt Date: 20170629
  Transmission Date: 20170830
  Serious: Yes (Other)
  Sender: FDA-Public Use
  Company Number: None

PATIENT
  Sex: Female

DRUGS (2)
  1. D10W [Suspect]
     Active Substance: DEXTROSE\WATER
     Dosage: ?          OTHER FREQUENCY:CONTINUOUS;?
     Route: 041
  2. D10W [Suspect]
     Active Substance: DEXTROSE\WATER
     Dosage: ?          OTHER FREQUENCY:CONTINUOUS;?
     Route: 041

REACTIONS (3)
  - Blood glucose increased [None]
  - Product preparation error [None]
  - Product quality issue [None]

NARRATIVE: CASE EVENT DATE: 20170622
